FAERS Safety Report 8096771-6 (Version None)
Quarter: 2012Q1

REPORT INFORMATION
  Report Type: 
  Country: None (occurrence: None)
  Receive Date: 20120129
  Receipt Date: 20111111
  Transmission Date: 20120608
  Serious: Yes (Hospitalization, Other)
  Sender: FDA-Public Use
  Company Number: US-ABBOTT-11P-163-0860929-00

PATIENT
  Sex: Female
  Weight: 57.204 kg

DRUGS (13)
  1. HUMIRA [Suspect]
     Indication: CROHN'S DISEASE
  2. FENTANYL [Concomitant]
     Indication: PAIN
     Dosage: PATCH
  3. LYRICA [Concomitant]
     Indication: FIBROMYALGIA
     Dosage: 1 IN AM; 1 AT HOUR OF SLEEP
  4. CIMZIA [Concomitant]
     Indication: CROHN'S DISEASE
     Route: 050
  5. SCOPOLAMINE [Suspect]
     Indication: VOMITING
     Dates: start: 20110101, end: 20110101
  6. PAIN MEDICATION [Suspect]
     Indication: PAIN
  7. ONDANSETRON HCL [Concomitant]
     Indication: PRODUCT USED FOR UNKNOWN INDICATION
  8. KLONOPIN [Concomitant]
     Indication: ANXIETY
     Dosage: NIGHTLY
  9. TRAMADOL HCL [Concomitant]
     Indication: BREAKTHROUGH PAIN
     Dosage: (TAKES SAME TIME AS OXYCODONE)
  10. HUMIRA [Suspect]
     Dates: start: 20110501, end: 20110601
  11. OXYCODONE HCL [Concomitant]
     Indication: BREAKTHROUGH PAIN
     Dosage: (TAKES TRAMADOL AT SAME TIME)
  12. PHENERGAN [Concomitant]
     Indication: PRODUCT USED FOR UNKNOWN INDICATION
  13. CYMBALTA [Concomitant]
     Indication: DEPRESSION

REACTIONS (17)
  - LOCAL SWELLING [None]
  - ABASIA [None]
  - NEUROPATHY PERIPHERAL [None]
  - ECZEMA [None]
  - LABORATORY TEST ABNORMAL [None]
  - SEPSIS [None]
  - VOMITING [None]
  - FIBROMYALGIA [None]
  - WEIGHT DECREASED [None]
  - ANXIETY [None]
  - DRUG HYPERSENSITIVITY [None]
  - DEPRESSION [None]
  - DRUG INEFFECTIVE [None]
  - APHAGIA [None]
  - CROHN'S DISEASE [None]
  - PAIN [None]
  - APPLICATION SITE PAIN [None]
